FAERS Safety Report 22081241 (Version 2)
Quarter: 2023Q1

REPORT INFORMATION
  Report Type: Spontaneous
  Country: US (occurrence: US)
  Receive Date: 20230309
  Receipt Date: 20230324
  Transmission Date: 20230417
  Serious: Yes (Hospitalization)
  Sender: FDA-Public Use
  Company Number: US-TEVA-2023-US-2862321

PATIENT
  Age: 20 Year
  Sex: Male

DRUGS (1)
  1. CLOZAPINE [Suspect]
     Active Substance: CLOZAPINE
     Indication: Schizophrenia
     Dosage: 600 MILLIGRAM DAILY; ONCE A DAY
     Route: 065

REACTIONS (8)
  - Seizure [Recovering/Resolving]
  - Catatonia [Recovered/Resolved]
  - Schizophrenia [Recovered/Resolved]
  - Withdrawal syndrome [Unknown]
  - Weight decreased [Unknown]
  - Decreased appetite [Recovered/Resolved]
  - Focal dyscognitive seizures [Recovering/Resolving]
  - Memory impairment [Unknown]
